FAERS Safety Report 6359514-X (Version None)
Quarter: 2009Q3

REPORT INFORMATION
  Report Type: 
  Country: None (occurrence: None)
  Receive Date: 20090917
  Receipt Date: 20090909
  Transmission Date: 20100115
  Serious: Yes (Hospitalization)
  Sender: FDA-Public Use
  Company Number: JP-AVENTIS-200911760JP

PATIENT
  Age: 79 Year
  Sex: Female
  Weight: 44.7 kg

DRUGS (3)
  1. ENOXAPARIN SODIUM [Suspect]
     Indication: OSTEOSYNTHESIS
     Route: 058
     Dates: start: 20090611, end: 20090620
  2. ARICEPT ODT [Concomitant]
     Indication: DEMENTIA
     Route: 048
  3. ASPIRIN [Concomitant]
     Route: 048
     Dates: start: 20080701, end: 20090610

REACTIONS (2)
  - POST PROCEDURAL HAEMATOMA [None]
  - POSTOPERATIVE WOUND INFECTION [None]
